FAERS Safety Report 6477765-0 (Version None)
Quarter: 2009Q4

REPORT INFORMATION
  Report Type: 
  Country: None (occurrence: None)
  Receive Date: 20091207
  Receipt Date: 20091125
  Transmission Date: 20100525
  Serious: Yes (Other)
  Sender: FDA-Public Use
  Company Number: US-PFIZER INC-2009289663

PATIENT
  Sex: Female

DRUGS (3)
  1. CHANTIX [Suspect]
  2. NICODERM [Concomitant]
  3. NICORETTE [Concomitant]

REACTIONS (3)
  - DEPRESSION [None]
  - LIVER INJURY [None]
  - SUICIDE ATTEMPT [None]
